FAERS Safety Report 13839254 (Version 1)
Quarter: 2017Q3

REPORT INFORMATION
  Report Type: Spontaneous
  Country: JP (occurrence: JP)
  Receive Date: 20170807
  Receipt Date: 20170807
  Transmission Date: 20171127
  Serious: Yes (Other)
  Sender: FDA-Public Use
  Company Number: JP-009507513-1707JPN000521J

PATIENT
  Age: 33 Year
  Sex: Male

DRUGS (5)
  1. TETRAMIDE TABLETS 10MG [Suspect]
     Active Substance: MIANSERIN
     Indication: SUICIDE ATTEMPT
     Dosage: 220 MG, UNK
     Route: 048
     Dates: start: 20170714
  2. LEXAPRO [Suspect]
     Active Substance: ESCITALOPRAM OXALATE
     Indication: SUICIDE ATTEMPT
     Dosage: 10 MG, UNK
     Route: 048
     Dates: start: 20170714
  3. LOXOPROFEN [Suspect]
     Active Substance: LOXOPROFEN
     Indication: SUICIDE ATTEMPT
     Dosage: 180 MG, UNK
     Route: 048
     Dates: start: 20170714
  4. BELSOMRA [Suspect]
     Active Substance: SUVOREXANT
     Indication: SUICIDE ATTEMPT
     Dosage: 160 MG, UNK
     Route: 048
     Dates: start: 20170714
  5. FLUNITRAZEPAM [Suspect]
     Active Substance: FLUNITRAZEPAM
     Indication: SUICIDE ATTEMPT
     Dosage: 4 MG, UNK
     Route: 048
     Dates: start: 20170714

REACTIONS (2)
  - Overdose [Unknown]
  - Suicide attempt [Unknown]

NARRATIVE: CASE EVENT DATE: 20170714
